FAERS Safety Report 14851779 (Version 1)
Quarter: 2018Q2

REPORT INFORMATION
  Report Type: Spontaneous
  Country: US (occurrence: US)
  Receive Date: 20180507
  Receipt Date: 20180507
  Transmission Date: 20180711
  Serious: No
  Sender: FDA-Public Use
  Company Number: US-009507513-1804USA007661

PATIENT
  Age: 32 Year
  Sex: Female
  Weight: 72.56 kg

DRUGS (1)
  1. NEXPLANON [Suspect]
     Active Substance: ETONOGESTREL
     Indication: CONTRACEPTION
     Dosage: 5 YEAR IMPLANT, LEFT ARM
     Route: 059
     Dates: start: 20180306

REACTIONS (3)
  - Vaginal haemorrhage [Unknown]
  - Circumstance or information capable of leading to medication error [Unknown]
  - Device use issue [Unknown]

NARRATIVE: CASE EVENT DATE: 20180306
